FAERS Safety Report 6540365-8 (Version None)
Quarter: 2010Q1

REPORT INFORMATION
  Report Type: 
  Country: None (occurrence: None)
  Receive Date: 20100115
  Receipt Date: 20100108
  Transmission Date: 20100710
  Serious: Yes (Hospitalization, Other)
  Sender: FDA-Public Use
  Company Number: US-MERCK-1001USA00544

PATIENT
  Age: 86 Year
  Sex: Female

DRUGS (2)
  1. FOSAMAX [Suspect]
     Route: 048
     Dates: start: 19920101, end: 20091201
  2. FOSAMAX PLUS D [Suspect]
     Route: 048
     Dates: start: 19920101, end: 20091201

REACTIONS (3)
  - BONE DENSITY DECREASED [None]
  - FALL [None]
  - JAW FRACTURE [None]
